FAERS Safety Report 8115485-7 (Version None)
Quarter: 2012Q1

REPORT INFORMATION
  Report Type: 
  Country: None (occurrence: None)
  Receive Date: 20120206
  Receipt Date: 20120123
  Transmission Date: 20120608
  Serious: Yes (Other)
  Sender: FDA-Public Use
  Company Number: DE-TEVA-320708ISR

PATIENT
  Sex: Male
  Weight: 73 kg

DRUGS (6)
  1. SEBIVO (TELBIVUDINE) [Suspect]
     Dosage: 600 MILLIGRAM;
     Route: 048
     Dates: start: 20100820
  2. RITUXIMAB [Suspect]
     Dosage: 727 MILLIGRAM;
     Route: 042
     Dates: start: 20100904, end: 20110131
  3. ISOPTIN [Concomitant]
  4. BENDAMUSTINE [Suspect]
     Dosage: 174 MILLIGRAM;
     Route: 042
     Dates: start: 20100904, end: 20110131
  5. DIGITOXIN TAB [Concomitant]
  6. MARCUMAR [Concomitant]

REACTIONS (1)
  - GAMMA-GLUTAMYLTRANSFERASE INCREASED [None]
